FAERS Safety Report 7606513-3 (Version None)
Quarter: 2011Q3

REPORT INFORMATION
  Report Type: 
  Country: None (occurrence: None)
  Receive Date: 20110713
  Receipt Date: 20110709
  Transmission Date: 20111222
  Serious: No
  Sender: FDA-Public Use
  Company Number: US-PFIZER INC-2011154794

PATIENT
  Sex: Female
  Weight: 61.2 kg

DRUGS (2)
  1. PREMPRO [Suspect]
     Indication: PREMATURE MENOPAUSE
     Dosage: 0.625 MG, 1X/DAY
     Route: 048
  2. PREMPRO [Suspect]
     Indication: HOT FLUSH

REACTIONS (4)
  - VAGINAL HAEMORRHAGE [None]
  - MUSCLE SPASMS [None]
  - DYSPNOEA [None]
  - PELVIC PAIN [None]
